FAERS Safety Report 7107918-X (Version None)
Quarter: 2010Q4

REPORT INFORMATION
  Report Type: 
  Country: None (occurrence: None)
  Receive Date: 20101117
  Receipt Date: 20101110
  Transmission Date: 20110411
  Serious: Yes (Hospitalization)
  Sender: FDA-Public Use
  Company Number: JP-ALLERGAN-1014697US

PATIENT
  Age: 7 Year
  Sex: Female

DRUGS (1)
  1. BOTOX INJECTION 100 [Suspect]
     Indication: TORTICOLLIS
     Dosage: 100 UNITS, SINGLE
     Route: 030
     Dates: start: 20071026, end: 20071026

REACTIONS (2)
  - GLOSSOPTOSIS [None]
  - SNORING [None]
